FAERS Safety Report 18015036 (Version 2)
Quarter: 2020Q3

REPORT INFORMATION
  Report Type: Spontaneous
  Country: NL (occurrence: NL)
  Receive Date: 20200713
  Receipt Date: 20200720
  Transmission Date: 20201103
  Serious: Yes (Hospitalization)
  Sender: FDA-Public Use
  Company Number: NVSC2020NL193489

PATIENT
  Age: 60 Year
  Sex: Female
  Weight: 63 kg

DRUGS (6)
  1. PANTOPRAZOL [Concomitant]
     Active Substance: PANTOPRAZOLE SODIUM
     Indication: PRODUCT USED FOR UNKNOWN INDICATION
     Dosage: 60 MG, QD (1 KEER PER DAG 1.5 STUK(S))
     Route: 048
  2. CEFTRIAXONE. [Suspect]
     Active Substance: CEFTRIAXONE
     Indication: PYREXIA
     Dosage: 2000 MG, QD (1 KEER PER DAG 1 STUK(S)) (INFUSIEPOEDER)
     Route: 042
     Dates: start: 20160525
  3. ASPIRIN. [Concomitant]
     Active Substance: ASPIRIN
     Indication: PRODUCT USED FOR UNKNOWN INDICATION
     Dosage: 80 MG, QD (1 KEER PER DAG 1 STUK(S))
     Route: 048
     Dates: start: 2002
  4. ATORVASTATINE [Concomitant]
     Active Substance: ATORVASTATIN
     Indication: PRODUCT USED FOR UNKNOWN INDICATION
     Dosage: 20 MG, QD (1 KEER PER DAG 1 STUK(S))
     Route: 048
     Dates: start: 2002
  5. Q10 [Concomitant]
     Active Substance: DIETARY SUPPLEMENT\UBIDECARENONE
     Indication: PRODUCT USED FOR UNKNOWN INDICATION
     Dosage: 100 MG, QD (1 KEER PER DAG 1 STUK(S))
     Route: 048
     Dates: start: 2005
  6. CEFTAZIDIM [Suspect]
     Active Substance: CEFTAZIDIME
     Indication: LEUKOPENIA
     Dosage: 4000 MG, QD CONTINUE
     Route: 042
     Dates: start: 20160526

REACTIONS (1)
  - Haemolytic anaemia [Recovering/Resolving]

NARRATIVE: CASE EVENT DATE: 20160529
